FAERS Safety Report 13783727 (Version 1)
Quarter: 2017Q3

REPORT INFORMATION
  Report Type: Spontaneous
  Country: US (occurrence: US)
  Receive Date: 20170724
  Receipt Date: 20170724
  Transmission Date: 20171127
  Serious: Yes (Other)
  Sender: FDA-Public Use
  Company Number: US-PFIZER INC-2013064174

PATIENT
  Sex: Female
  Weight: 58 kg

DRUGS (32)
  1. ASPIRIN (E.C.) [Concomitant]
     Active Substance: ASPIRIN
     Indication: COAGULOPATHY
  2. CITRACAL PLUS [Concomitant]
     Active Substance: CALCIUM\MAGNESIUM\VITAMIN D\ZINC
     Indication: MENOPAUSE
     Dosage: UNK
     Route: 048
     Dates: start: 20110624
  3. TRAZODONE HYDROCHLORIDE. [Concomitant]
     Active Substance: TRAZODONE HYDROCHLORIDE
     Indication: SLEEP DISORDER
     Dosage: 25 MG, 1X/DAY (1-2 TAB AT BEDTIME)
     Route: 048
     Dates: start: 20170111
  4. FUROSEMIDE. [Concomitant]
     Active Substance: FUROSEMIDE
     Dosage: 40 MG, DAILY
     Route: 048
     Dates: start: 20170111
  5. ALPRAZOLAM. [Concomitant]
     Active Substance: ALPRAZOLAM
     Indication: ANXIETY
     Dosage: UNK, AS NEEDED; ONE HALF TO ONE BID
     Route: 048
     Dates: start: 20110623
  6. VITAMIN C [Concomitant]
     Active Substance: ASCORBIC ACID
     Dosage: 1 DF, DAILY
     Dates: start: 20070913
  7. DIGOXIN. [Concomitant]
     Active Substance: DIGOXIN
     Indication: CARDIAC DISORDER
  8. ALPRAZOLAM. [Concomitant]
     Active Substance: ALPRAZOLAM
     Dosage: 0.25 MG, 2X/DAY
     Route: 048
     Dates: start: 20170111
  9. ESTRADIOL. [Concomitant]
     Active Substance: ESTRADIOL
     Indication: MENOPAUSE
     Dosage: 0.5 MG, DAILY
     Route: 048
     Dates: start: 20110623
  10. DIGOXIN. [Concomitant]
     Active Substance: DIGOXIN
     Indication: ATRIAL FIBRILLATION
     Dosage: 125 UG, ALTERNATE DAY (MONDAY, WEDNESDAY, FRIDAY)
     Route: 048
     Dates: start: 20170111
  11. CALCIUM CITRATE + D [Concomitant]
     Indication: SUPPLEMENTATION THERAPY
     Dosage: 1 DF, DAILY (315 MG/ 200 IU)
     Route: 048
     Dates: start: 20170111
  12. PRILOSEC [Concomitant]
     Active Substance: OMEPRAZOLE MAGNESIUM
     Dosage: 20 MG, 2X/DAY
     Route: 048
  13. FISH OIL [Concomitant]
     Active Substance: FISH OIL
     Dosage: 1 DF, DAILY
  14. POTASSIUM CHLORIDE. [Concomitant]
     Active Substance: POTASSIUM CHLORIDE
     Indication: SUPPLEMENTATION THERAPY
     Dosage: 10 MEQ, DAILY
     Route: 048
     Dates: start: 20170111
  15. OMEGA-3 ACIDS [Concomitant]
     Active Substance: OMEGA-3 FATTY ACIDS
     Dosage: 1000 MG, DAILY
     Route: 048
     Dates: start: 20170111
  16. OMEPRAZOLE. [Concomitant]
     Active Substance: OMEPRAZOLE
     Indication: ABDOMINAL DISCOMFORT
     Dosage: 20 MG, 2X/DAY
     Route: 048
     Dates: start: 20170111
  17. TIKOSYN [Suspect]
     Active Substance: DOFETILIDE
     Dosage: 250 UG, 2X/DAY
     Route: 048
     Dates: start: 20170111
  18. ZOLPIDEM TARTRATE. [Concomitant]
     Active Substance: ZOLPIDEM TARTRATE
     Indication: INSOMNIA
     Dosage: 6.25 MG, AS NEEDED, AT BEDTIME
     Route: 048
     Dates: start: 20130122
  19. ESTRACE [Concomitant]
     Active Substance: ESTRADIOL
     Indication: MENOPAUSE
     Dosage: 1 G, 2X/WEEK (HS)
     Route: 067
     Dates: start: 20111115
  20. ESTRACE [Concomitant]
     Active Substance: ESTRADIOL
     Dosage: 1 G, 2X/WEEK
     Route: 067
     Dates: start: 20170111
  21. SYNTHROID [Concomitant]
     Active Substance: LEVOTHYROXINE SODIUM
     Indication: HYPOTHYROIDISM
     Dosage: 25 UG, DAILY
     Route: 048
     Dates: start: 20120706
  22. DILTIAZEM HCL [Concomitant]
     Active Substance: DILTIAZEM HYDROCHLORIDE
     Indication: HYPERTENSION
  23. TYLENOL [Concomitant]
     Active Substance: ACETAMINOPHEN
     Dosage: 1 DF, AS NEEDED, EVERY 4 TO 6 HOURS
  24. DILTIAZEM HCL [Concomitant]
     Active Substance: DILTIAZEM HYDROCHLORIDE
     Indication: ATRIAL FIBRILLATION
     Dosage: 120 MG, 2X/DAY
     Route: 048
     Dates: start: 20170111
  25. ACETAMINOPHEN. [Concomitant]
     Active Substance: ACETAMINOPHEN
     Indication: PAIN
     Dosage: 650 MG, DAILY
     Route: 048
     Dates: start: 20170111
  26. TIKOSYN [Suspect]
     Active Substance: DOFETILIDE
     Indication: ATRIAL FIBRILLATION
     Dosage: 250 UG, 2X/DAY
     Route: 048
     Dates: start: 20100419
  27. CENTRUM SILVER [Concomitant]
     Active Substance: MINERALS\VITAMINS
     Dosage: 1 DF, DAILY
     Route: 048
     Dates: start: 20090127
  28. CHONDROITIN SULFATE W/GLUCOSAMINE [Concomitant]
     Dosage: 1 DF, DAILY
     Dates: start: 20090127
  29. ASPIRIN (E.C.) [Concomitant]
     Active Substance: ASPIRIN
     Indication: ATRIAL FIBRILLATION
     Dosage: 81 MG, DAILY
     Route: 048
     Dates: start: 20090415
  30. ELIQUIS [Concomitant]
     Active Substance: APIXABAN
     Indication: ANTICOAGULANT THERAPY
     Dosage: 5 MG, 2X/DAY
     Route: 048
     Dates: start: 20170111
  31. TIKOSYN [Suspect]
     Active Substance: DOFETILIDE
     Dosage: UNK
     Route: 048
  32. LEVOTHYROXINE SODIUM. [Concomitant]
     Active Substance: LEVOTHYROXINE SODIUM
     Dosage: 50 UG, DAILY
     Route: 048
     Dates: start: 20170111

REACTIONS (2)
  - Drug effect incomplete [Unknown]
  - Transient ischaemic attack [Unknown]

NARRATIVE: CASE EVENT DATE: 201512
